FAERS Safety Report 14483054 (Version 1)
Quarter: 2018Q1

REPORT INFORMATION
  Report Type: Spontaneous
  Country: CA (occurrence: CA)
  Receive Date: 20180202
  Receipt Date: 20180202
  Transmission Date: 20180509
  Serious: Yes (Hospitalization, Disabling)
  Sender: FDA-Public Use
  Company Number: None

PATIENT
  Age: 25 Year
  Sex: Female
  Weight: 63 kg

DRUGS (8)
  1. CORTISONE [Suspect]
     Active Substance: CORTISONE\HYDROCORTISONE
  2. FISH OIL [Concomitant]
     Active Substance: FISH OIL
  3. CHINESE TEA [Concomitant]
  4. PREDNISONE. [Suspect]
     Active Substance: PREDNISONE
     Indication: ECZEMA
     Route: 062
  5. VITAMIN D [Concomitant]
     Active Substance: CHOLECALCIFEROL
  6. STEROID CREAMS [Concomitant]
     Active Substance: UNSPECIFIED INGREDIENT
  7. VITAMIN B [Concomitant]
     Active Substance: VITAMIN B
  8. BROCCOLI SPROUT EXTRACT [Concomitant]

REACTIONS (5)
  - Withdrawal syndrome [None]
  - Skin haemorrhage [None]
  - Skin swelling [None]
  - Pruritus [None]
  - Drug ineffective [None]

NARRATIVE: CASE EVENT DATE: 20170801
